FAERS Safety Report 24773094 (Version 1)
Quarter: 2024Q4

REPORT INFORMATION
  Report Type: Spontaneous
  Country: US (occurrence: US)
  Receive Date: 20241225
  Receipt Date: 20241225
  Transmission Date: 20250115
  Serious: Yes (Death, Hospitalization)
  Sender: AMGEN
  Company Number: US-AMGEN-USASP2024249417

PATIENT
  Age: 81 Year
  Sex: Male

DRUGS (3)
  1. PREDNISONE [Suspect]
     Active Substance: PREDNISONE
     Indication: Giant cell arteritis
     Dosage: UNK
     Route: 065
  2. OXYCONTIN [Concomitant]
     Active Substance: OXYCODONE HYDROCHLORIDE
     Indication: Pain
     Dosage: UNK
     Route: 065
  3. FAMVIR [Concomitant]
     Active Substance: FAMCICLOVIR
     Indication: Herpes zoster
     Dosage: UNK
     Route: 065

REACTIONS (3)
  - Death [Fatal]
  - Herpes zoster meningoencephalitis [Unknown]
  - Off label use [Unknown]
